FAERS Safety Report 23980543 (Version 1)
Quarter: 2024Q2

REPORT INFORMATION
  Report Type: Spontaneous
  Country: US (occurrence: US)
  Receive Date: 20240617
  Receipt Date: 20240617
  Transmission Date: 20240716
  Serious: Yes (Other)
  Sender: FDA-Public Use
  Company Number: US-Accord-365752

PATIENT
  Sex: Male

DRUGS (1)
  1. DILTIAZEM [Suspect]
     Active Substance: DILTIAZEM
     Indication: Atrial fibrillation
     Dosage: ON EMPTY STOMACH
     Route: 065

REACTIONS (7)
  - Dizziness [Unknown]
  - Ear pain [Unknown]
  - Neuropathy peripheral [Unknown]
  - Tinnitus [Unknown]
  - Fatigue [Unknown]
  - Eating disorder [Unknown]
  - Off label use [Unknown]
